FAERS Safety Report 7583035-X (Version None)
Quarter: 2011Q2

REPORT INFORMATION
  Report Type: 
  Country: None (occurrence: None)
  Receive Date: 20110630
  Receipt Date: 20110624
  Transmission Date: 20111010
  Serious: Yes (Hospitalization)
  Sender: FDA-Public Use
  Company Number: JP-BRISTOL-MYERS SQUIBB COMPANY-15860950

PATIENT
  Age: 67 Year
  Sex: Male

DRUGS (1)
  1. PACLITAXEL [Suspect]
     Indication: GASTRIC CANCER

REACTIONS (1)
  - PNEUMOTHORAX [None]
